FAERS Safety Report 5919190-4 (Version None)
Quarter: 2008Q3

REPORT INFORMATION
  Report Type: 
  Country: None (occurrence: None)
  Receive Date: 20080909
  Receipt Date: 20070223
  Transmission Date: 20090109
  Serious: Yes (Hospitalization)
  Sender: FDA-Public Use
  Company Number: 163-20785-07021217 (0)

PATIENT
  Sex: Male

DRUGS (19)
  1. THALOMID [Suspect]
     Indication: MULTIPLE MYELOMA
     Dosage: 100 MG, 1 IN 1 D, ORAL ; ORAL
     Route: 048
     Dates: start: 20061001, end: 20061021
  2. THALOMID [Suspect]
     Indication: MULTIPLE MYELOMA
     Dosage: 100 MG, 1 IN 1 D, ORAL ; ORAL
     Route: 048
     Dates: start: 20061126, end: 20061210
  3. VELCADE [Suspect]
     Indication: MULTIPLE MYELOMA
     Dosage: 2 MG, DAYS 1 , 4, 8 , + 11 EVERY 28 DAYS
     Dates: start: 20061016, end: 20061123
  4. DEXAMETHASONE [Suspect]
     Indication: MULTIPLE MYELOMA
     Dosage: 20 MG, DAYS 1-4 + 8-11 EVERY 28 DAYS, ORAL
     Route: 048
     Dates: start: 20061016, end: 20061019
  5. MELPHALAN (MELPHALAN) [Suspect]
     Indication: MULTIPLE MYELOMA
  6. CISPLATIN [Suspect]
     Indication: MULTIPLE MYELOMA
  7. ADRIAMYCIN PFS [Suspect]
     Indication: MULTIPLE MYELOMA
  8. CYCLOPHOSPHAMIDE [Suspect]
     Indication: MULTIPLE MYELOMA
  9. ETOPOSIDE [Suspect]
     Indication: MULTIPLE MYELOMA
  10. POTASSIUM (POTASSIUM) [Concomitant]
  11. DARVOCET [Concomitant]
  12. MAGNESIUM (MAGNESIUM) [Concomitant]
  13. ACYCLOVIR [Concomitant]
  14. PROTONIX [Concomitant]
  15. COLACE (DOCUSATE SODIUM) [Concomitant]
  16. ZANTAC (RANITIDINE HYDRCHLORIDE) [Concomitant]
  17. ATIVAN [Concomitant]
  18. LOVENOX [Concomitant]
  19. DIFLUCAN [Concomitant]

REACTIONS (2)
  - PYREXIA [None]
  - WEST NILE VIRAL INFECTION [None]
